FAERS Safety Report 23296106 (Version 3)
Quarter: 2024Q4

REPORT INFORMATION
  Report Type: Spontaneous
  Country: US (occurrence: US)
  Receive Date: 20231214
  Receipt Date: 20241226
  Transmission Date: 20250114
  Serious: No
  Sender: SANOFI AVENTIS
  Company Number: US-SA-SAC20231207001222

PATIENT
  Age: 38 Year
  Sex: Female

DRUGS (1)
  1. DUPIXENT [Suspect]
     Active Substance: DUPILUMAB
     Indication: Asthma
     Dosage: 300 MG, QOW
     Route: 058
     Dates: start: 20220506

REACTIONS (4)
  - Lip swelling [Unknown]
  - Chapped lips [Unknown]
  - Oral herpes [Unknown]
  - Asthma [Unknown]

NARRATIVE: CASE EVENT DATE: 20220501
